FAERS Safety Report 8452034 (Version 3)
Quarter: 2013Q1

REPORT INFORMATION
  Report Type: Report from Study
  Country: BR (occurrence: BR)
  Receive Date: 20120309
  Receipt Date: 20130103
  Transmission Date: 20140127
  Serious: Yes (Hospitalization, Other)
  Sender: FDA-Public Use
  Company Number: BR-ROCHE-745023

PATIENT
  Age: 52 Year
  Sex: Female
  Weight: 60 kg

DRUGS (10)
  1. RITUXIMAB [Suspect]
     Indication: RHEUMATOID ARTHRITIS
     Dosage: FORM: INFUSION
     Route: 065
     Dates: start: 20101101, end: 20120305
  2. DEFLAZACORT [Concomitant]
     Route: 065
  3. RANITIDINE [Concomitant]
     Route: 065
  4. CALCIUM [Concomitant]
     Route: 065
  5. PREDNISOLONE [Concomitant]
     Indication: PREMEDICATION
     Route: 065
     Dates: start: 20101123, end: 20101123
  6. OMEPRAZOLE [Concomitant]
     Route: 065
  7. ALPRAZOLAM [Concomitant]
     Route: 065
  8. VITAMIN C [Concomitant]
  9. VITAMIN D [Concomitant]
  10. SYNTHROID [Concomitant]

REACTIONS (17)
  - Laryngeal oedema [Recovered/Resolved]
  - Drug ineffective [Unknown]
  - Chest pain [Recovered/Resolved]
  - Throat irritation [Recovered/Resolved]
  - Musculoskeletal pain [Not Recovered/Not Resolved]
  - Arthralgia [Not Recovered/Not Resolved]
  - Muscle spasms [Not Recovered/Not Resolved]
  - Hypoaesthesia [Not Recovered/Not Resolved]
  - Alopecia [Not Recovered/Not Resolved]
  - Oropharyngeal pain [Not Recovered/Not Resolved]
  - Influenza [Recovered/Resolved]
  - Pleural effusion [Unknown]
  - Thyroid disorder [Unknown]
  - Fibrosis [Unknown]
  - Weight decreased [Not Recovered/Not Resolved]
  - Pain in extremity [Not Recovered/Not Resolved]
  - Arthralgia [Unknown]
